FAERS Safety Report 21443236 (Version 2)
Quarter: 2022Q4

REPORT INFORMATION
  Report Type: Report from Study
  Country: GB (occurrence: GB)
  Receive Date: 20221012
  Receipt Date: 20221125
  Transmission Date: 20230113
  Serious: Yes (Death, Hospitalization)
  Sender: FDA-Public Use
  Company Number: GB-BAYER-2022A127648

PATIENT
  Age: 74 Year
  Sex: Male

DRUGS (3)
  1. VENTAVIS [Suspect]
     Active Substance: ILOPROST
     Indication: Pulmonary arterial hypertension
     Dosage: UNK
     Route: 055
  2. ILOPROST [Suspect]
     Active Substance: ILOPROST
     Indication: Pulmonary arterial hypertension
     Dosage: UNK
     Route: 065
  3. ILOPROST [Suspect]
     Active Substance: ILOPROST
     Indication: Pulmonary arterial hypertension
     Dosage: UNK

REACTIONS (5)
  - Death [Fatal]
  - Fall [Unknown]
  - Rib fracture [Unknown]
  - Drug dose omission by device [Unknown]
  - Device use error [Unknown]
